FAERS Safety Report 6497764-2 (Version None)
Quarter: 2009Q4

REPORT INFORMATION
  Report Type: 
  Country: None (occurrence: None)
  Receive Date: 20091215
  Receipt Date: 20091203
  Transmission Date: 20100525
  Serious: Yes (Hospitalization, Other)
  Sender: FDA-Public Use
  Company Number: US-BAYER-200935783NA

PATIENT
  Age: 36 Year
  Sex: Female
  Weight: 62 kg

DRUGS (1)
  1. MIRENA [Suspect]
     Indication: CONTRACEPTION
     Dosage: CONTINUOUS
     Route: 015
     Dates: start: 20080701, end: 20090928

REACTIONS (9)
  - ABDOMINAL DISTENSION [None]
  - ABDOMINAL PAIN [None]
  - BACK DISORDER [None]
  - DYSPAREUNIA [None]
  - HYPOMENORRHOEA [None]
  - MOOD ALTERED [None]
  - PAIN [None]
  - PELVIC INFLAMMATORY DISEASE [None]
  - WEIGHT INCREASED [None]
